FAERS Safety Report 9761047 (Version 2)
Quarter: 2014Q1

REPORT INFORMATION
  Report Type: Spontaneous
  Country: PR (occurrence: US)
  Receive Date: 20131216
  Receipt Date: 20140103
  Transmission Date: 20141002
  Serious: Yes (Other)
  Sender: FDA-Public Use
  Company Number: PR-PFIZER INC-2013356023

PATIENT
  Age: 52 Year
  Sex: Female

DRUGS (3)
  1. FLECTOR [Suspect]
     Indication: BACK PAIN
     Dosage: 1 DF, SINGLE
     Route: 062
     Dates: start: 20131204, end: 20131204
  2. PREDNISONE [Concomitant]
     Indication: VASCULITIS
     Dosage: 10 MG, DAILY
  3. CYCLOPHOSPHAMIDE [Concomitant]
     Indication: VASCULITIS
     Dosage: 50 MG, DAILY

REACTIONS (1)
  - Generalised oedema [Recovered/Resolved]
